FAERS Safety Report 18016684 (Version 2)
Quarter: 2020Q3

REPORT INFORMATION
  Report Type: Spontaneous
  Country: US (occurrence: US)
  Receive Date: 20200713
  Receipt Date: 20200717
  Transmission Date: 20201103
  Serious: Yes (Hospitalization, Other)
  Sender: FDA-Public Use
  Company Number: US-PFIZER INC-2020267275

PATIENT
  Age: 66 Year
  Sex: Female

DRUGS (5)
  1. OXYGEN. [Concomitant]
     Active Substance: OXYGEN
     Indication: SUPPLEMENTATION THERAPY
     Dosage: 15 L (NON?REBREATHER MASK)
  2. OXYGEN. [Concomitant]
     Active Substance: OXYGEN
     Dosage: 5 L (VENTURI MASK)
     Route: 045
  3. METHYLPREDNISOLONE SODIUM SUCCINATE. [Suspect]
     Active Substance: METHYLPREDNISOLONE SODIUM SUCCINATE
     Dosage: UNK
     Route: 042
  4. OXYGEN. [Concomitant]
     Active Substance: OXYGEN
     Dosage: 3 L
     Route: 045
  5. FLUTICASONE PROPIONATE/SALMETEROL [Suspect]
     Active Substance: FLUTICASONE PROPIONATE\SALMETEROL XINAFOATE
     Indication: CHRONIC OBSTRUCTIVE PULMONARY DISEASE
     Dosage: UNK

REACTIONS (1)
  - Bacillus infection [Recovered/Resolved]
